FAERS Safety Report 15712698 (Version 1)
Quarter: 2018Q4

REPORT INFORMATION
  Report Type: Spontaneous
  Country: JP (occurrence: JP)
  Receive Date: 20181212
  Receipt Date: 20181212
  Transmission Date: 20190205
  Serious: Yes (Death, Other)
  Sender: FDA-Public Use
  Company Number: JP-AMGEN-JPNSP2018176947

PATIENT
  Age: 68 Year
  Sex: Female
  Weight: 36 kg

DRUGS (6)
  1. PYRIDOXAL [Concomitant]
     Active Substance: PYRIDOXAL
     Dosage: 10 MG, TID
     Route: 048
     Dates: start: 20170817
  2. BARACLUDE [Concomitant]
     Active Substance: ENTECAVIR
     Dosage: 0.5 MG, QD
     Route: 048
     Dates: start: 20161110
  3. RANMARK [Suspect]
     Active Substance: DENOSUMAB
     Indication: METASTASES TO BONE
     Dosage: 120 MG
     Route: 058
     Dates: start: 20121227, end: 20171221
  4. FLAVITAN [Concomitant]
     Active Substance: FLAVIN ADENINE DINUCLEOTIDE
     Dosage: 10 MG, TID
     Route: 048
     Dates: start: 20170817
  5. LASIX [Concomitant]
     Active Substance: FUROSEMIDE
     Dosage: 20 MG, QD
     Route: 048
     Dates: start: 20171005
  6. HALAVEN [Concomitant]
     Active Substance: ERIBULIN MESYLATE
     Dosage: 1.4 MG/M2, QD
     Route: 041
     Dates: start: 20170817

REACTIONS (2)
  - Death [Fatal]
  - Osteonecrosis of jaw [Unknown]

NARRATIVE: CASE EVENT DATE: 20171221
